FAERS Safety Report 10681368 (Version 2)
Quarter: 2015Q1

REPORT INFORMATION
  Report Type: Spontaneous
  Country: US (occurrence: US)
  Receive Date: 20141230
  Receipt Date: 20150105
  Transmission Date: 20150720
  Serious: Yes (Death, Other)
  Sender: FDA-Public Use
  Company Number: US-TAKEDA-2014MPI003433

PATIENT
  Age: 60 Year
  Sex: Male

DRUGS (10)
  1. DASATINIB [Suspect]
     Active Substance: DASATINIB
     Dosage: 100 MG, QD
     Route: 048
  2. VELCADE [Suspect]
     Active Substance: BORTEZOMIB
     Dosage: 0.7 MG/M2, 1/WEEK
     Route: 065
  3. DEXAMETHASONE. [Suspect]
     Active Substance: DEXAMETHASONE
     Indication: PLASMA CELL MYELOMA
     Dosage: 40 MG DAILY ON DAYS 1, 8, 15, AND 22 EVERY 4 WEEKS
     Route: 065
     Dates: start: 2008
  4. VELCADE [Suspect]
     Active Substance: BORTEZOMIB
     Indication: PLASMA CELL MYELOMA
     Dosage: 1.3MG/M2 ON DAYS 1, 4, 8, AND 11 EVERY 3 WEEKS
     Route: 065
     Dates: start: 2008
  5. VELCADE [Suspect]
     Active Substance: BORTEZOMIB
     Dosage: 1.3 MG/M2, 1/WEEK
     Route: 065
  6. LENALIDOMIDE [Suspect]
     Active Substance: LENALIDOMIDE
     Dosage: 25 MG, Q3WEEKS
     Route: 048
     Dates: start: 2012
  7. DEXAMETHASONE. [Suspect]
     Active Substance: DEXAMETHASONE
     Dosage: 20 MG, 1/WEEK
     Route: 048
     Dates: start: 2012
  8. LENALIDOMIDE [Suspect]
     Active Substance: LENALIDOMIDE
     Indication: PLASMA CELL MYELOMA
     Dosage: 25 MG, QD ON DAYS 1-21
     Route: 048
     Dates: start: 2008
  9. DASATINIB [Suspect]
     Active Substance: DASATINIB
     Indication: PLASMA CELL MYELOMA
     Dosage: 140 MG, QD
     Route: 048
  10. DEXAMETHASONE. [Suspect]
     Active Substance: DEXAMETHASONE
     Dosage: 20 MG, 1, 4, 8, AND 11 OF A 21-DAY CYCLE
     Route: 048

REACTIONS (5)
  - Pulmonary arterial hypertension [Fatal]
  - Chronic myeloid leukaemia [Unknown]
  - Respiratory failure [Fatal]
  - Anaemia [Recovering/Resolving]
  - Acute myocardial infarction [Unknown]
